FAERS Safety Report 9523683 (Version 4)
Quarter: 2014Q3

REPORT INFORMATION
  Report Type: Spontaneous
  Country: US (occurrence: US)
  Receive Date: 20130913
  Receipt Date: 20140807
  Transmission Date: 20150326
  Serious: No
  Sender: FDA-Public Use
  Company Number: US-009507513-1309USA002903

PATIENT
  Age: 56 Year
  Sex: Female
  Weight: 53.61 kg

DRUGS (13)
  1. VICTRELIS [Suspect]
     Active Substance: BOCEPREVIR
     Dosage: 800 MG, 4 CAPSULES BY MOUTH THREE TIMES A DAY
     Route: 048
  2. METHYLPHENIDATE [Concomitant]
     Active Substance: METHYLPHENIDATE
     Route: 048
  3. RIBAVIRIN (WARRICK) [Suspect]
     Active Substance: RIBAVIRIN
     Dosage: 200 MG, UNK
     Route: 048
  4. IMITREX [Concomitant]
     Active Substance: SUMATRIPTAN\SUMATRIPTAN SUCCINATE
     Route: 048
  5. CALCIUM (UNSPECIFIED) [Concomitant]
     Active Substance: CALCIUM
     Dosage: 500 TAB
     Route: 048
  6. CHOLECALCIFEROL [Concomitant]
     Active Substance: CHOLECALCIFEROL
     Route: 048
  7. NEXIUM [Concomitant]
     Active Substance: ESOMEPRAZOLE MAGNESIUM
     Route: 048
  8. PEGINTRON [Suspect]
     Active Substance: PEGINTERFERON ALFA-2B
     Indication: HEPATITIS C
     Dosage: 80 MCG/0.5 ML VIAL
     Route: 030
  9. PROBIOTICA [Concomitant]
     Active Substance: PROBIOTICS NOS
     Route: 048
  10. IBUPROFEN. [Concomitant]
     Active Substance: IBUPROFEN
     Route: 048
  11. CYMBALTA [Concomitant]
     Active Substance: DULOXETINE HYDROCHLORIDE
     Route: 048
  12. LANSOPRAZOLE. [Concomitant]
     Active Substance: LANSOPRAZOLE
     Dosage: DR
     Route: 048
  13. VITAMINS (UNSPECIFIED) [Concomitant]
     Active Substance: VITAMINS
     Route: 048

REACTIONS (17)
  - Weight decreased [Unknown]
  - Emotional disorder [Unknown]
  - Skin atrophy [Unknown]
  - Blood disorder [Unknown]
  - Palpitations [Unknown]
  - Fatigue [Unknown]
  - Abdominal discomfort [Unknown]
  - Balance disorder [Unknown]
  - Rash [Unknown]
  - Laboratory test abnormal [Unknown]
  - Productive cough [Unknown]
  - Rash [Unknown]
  - Decreased appetite [Unknown]
  - Dysphonia [Unknown]
  - Dyspnoea [Unknown]
  - Full blood count abnormal [Unknown]
  - Oropharyngeal pain [Unknown]

NARRATIVE: CASE EVENT DATE: 20130801
